FAERS Safety Report 13968460 (Version 4)
Quarter: 2017Q4

REPORT INFORMATION
  Report Type: Report from Study
  Country: MY (occurrence: MY)
  Receive Date: 20170914
  Receipt Date: 20171121
  Transmission Date: 20180320
  Serious: Yes (Life-Threatening, Hospitalization, Other)
  Sender: FDA-Public Use
  Company Number: MY-AMGEN-MYSNI2017138299

PATIENT
  Age: 42 Year
  Sex: Female

DRUGS (6)
  1. BLINATUMOMAB [Suspect]
     Active Substance: BLINATUMOMAB
     Dosage: 112 MUG, UNK
     Route: 042
     Dates: start: 20170824, end: 20170906
  2. BLINATUMOMAB [Suspect]
     Active Substance: BLINATUMOMAB
     Dosage: 9 MUG, UNK
     Route: 042
     Dates: start: 20170925
  3. BLINATUMOMAB [Suspect]
     Active Substance: BLINATUMOMAB
     Dosage: 28 MUG, UNK
     Route: 042
     Dates: start: 20170928
  4. BLINATUMOMAB [Suspect]
     Active Substance: BLINATUMOMAB
     Indication: NON-HODGKIN^S LYMPHOMA REFRACTORY
     Dosage: 9 MUG, UNK
     Route: 042
     Dates: start: 20170810, end: 20170816
  5. BLINATUMOMAB [Suspect]
     Active Substance: BLINATUMOMAB
     Dosage: 28 MUG, UNK
     Route: 042
     Dates: start: 20170817, end: 20170823
  6. BLINATUMOMAB [Suspect]
     Active Substance: BLINATUMOMAB
     Dosage: 112 MUG, UNK
     Route: 042
     Dates: start: 20171003, end: 20171101

REACTIONS (2)
  - Intestinal perforation [Recovered/Resolved]
  - Non-Hodgkin^s lymphoma [Recovering/Resolving]

NARRATIVE: CASE EVENT DATE: 20170904
